FAERS Safety Report 26049529 (Version 1)
Quarter: 2025Q4

REPORT INFORMATION
  Report Type: Spontaneous
  Country: CA (occurrence: CA)
  Receive Date: 20251115
  Receipt Date: 20251115
  Transmission Date: 20260118
  Serious: Yes (Other)
  Sender: CELLTRION
  Company Number: CA-CELLTRION INC.-2025CA041013

PATIENT

DRUGS (1)
  1. STEQEYMA [Suspect]
     Active Substance: USTEKINUMAB-STBA
     Indication: Psoriasis
     Dosage: 90 MG EVERY 10 WEEKS
     Route: 058
     Dates: start: 20250410

REACTIONS (3)
  - Abscess drainage [Recovering/Resolving]
  - Joint abscess [Recovering/Resolving]
  - Intentional product use issue [Unknown]
